FAERS Safety Report 9771884 (Version 1)
Quarter: 2013Q3

REPORT INFORMATION
  Report Type: Spontaneous
  Country: US (occurrence: None)
  Receive Date: 20130920
  Receipt Date: 20130920
  Transmission Date: 20140515
  Serious: Yes (Hospitalization, Other)
  Sender: FDA-Public Use
  Company Number: SYM-2013-10854

PATIENT
  Age: 76 Year
  Sex: Male

DRUGS (12)
  1. METRONIDAZOLE [Suspect]
     Indication: OSTEOMYELITIS BACTERIAL
     Dosage: 500 MG, 3 IN 1 D, ORAL
     Route: 048
  2. PIPERACILLIN/TAZOBACTAM (PIP/TAZO) (PIPERACILLIN SODIUM, TAZOBACTAM SODIUM) [Suspect]
     Indication: OSTEOMYELITIS BACTERIAL
     Dosage: 3.375 GM, 4 IN 1 D, INTRAVENOUS
     Route: 042
  3. LEVOFLOXACIN [Suspect]
     Indication: OSTEOMYELITIS BACTERIAL
     Route: 048
  4. MEROPENEM (MEROPENEM) [Suspect]
     Indication: OSTEOMYELITIS BACTERIAL
     Dosage: 1 GM, 3 IN 1 D, INTRAVENOUS (NOT OTHERWISE SPECIFIED)
     Route: 042
  5. METHOTREXATE (METHOTREXATE) [Suspect]
     Indication: RHEUMATOID ARTHRITIS
     Dosage: 60 UNIT, WEEKLY, SUBCUTANEOUS
     Route: 058
  6. VANCOMYCIN [Suspect]
     Indication: OSTEOMYELITIS BACTERIAL
     Dosage: 1 GM, 2 IN 1 D,
  7. CELECOXIB [Concomitant]
  8. HYDROXYCHLOROQUINE (HYDROXYCHLOROQUINE SULFATE) [Concomitant]
  9. FOLIC ACID (FOLIC ACID) [Concomitant]
  10. OMEPRAZOLE (OMEPRAZOLE) [Concomitant]
  11. GABAPENTIN [Concomitant]
  12. PREDNISONE (PREDNISONE) [Concomitant]

REACTIONS (6)
  - Osteomyelitis bacterial [None]
  - Clostridium difficile infection [None]
  - Haematochezia [None]
  - Diarrhoea [None]
  - Large intestine polyp [None]
  - Refusal of treatment by patient [None]
